FAERS Safety Report 17046966 (Version 1)
Quarter: 2019Q4

REPORT INFORMATION
  Report Type: Spontaneous
  Country: US (occurrence: US)
  Receive Date: 20191119
  Receipt Date: 20191119
  Transmission Date: 20200122
  Serious: No
  Sender: FDA-Public Use
  Company Number: US-ELI_LILLY_AND_COMPANY-US201910010610

PATIENT
  Age: 56 Year
  Sex: Female

DRUGS (5)
  1. NEUROTIN [GABAPENTIN] [Concomitant]
     Indication: MIGRAINE
     Dosage: UNK UNK, UNKNOWN
     Route: 065
  2. PERCOCET [Concomitant]
     Active Substance: ACETAMINOPHEN\OXYCODONE HYDROCHLORIDE
     Indication: MIGRAINE
     Dosage: UNK UNK, UNKNOWN
     Route: 065
  3. EMGALITY [Suspect]
     Active Substance: GALCANEZUMAB-GNLM
     Indication: MIGRAINE
     Dosage: 1 DOSAGE FORM, UNKNOWN
     Route: 065
     Dates: start: 20190903
  4. TOPIRAMATE. [Concomitant]
     Active Substance: TOPIRAMATE
     Indication: MIGRAINE
     Dosage: UNK UNK, UNKNOWN
  5. CLONAZEPAM. [Concomitant]
     Active Substance: CLONAZEPAM
     Indication: MIGRAINE
     Dosage: UNK UNK, UNKNOWN

REACTIONS (6)
  - Headache [Unknown]
  - Blood pressure increased [Unknown]
  - Injection site haemorrhage [Unknown]
  - Malaise [Unknown]
  - Heart rate increased [Unknown]
  - Migraine [Unknown]

NARRATIVE: CASE EVENT DATE: 20190904
